FAERS Safety Report 4810306-X (Version None)
Quarter: 2005Q4

REPORT INFORMATION
  Report Type: 
  Country: None (occurrence: None)
  Receive Date: 20051025
  Receipt Date: 20051025
  Transmission Date: 20060501
  Serious: Yes (Other)
  Sender: FDA-Public Use
  Company Number: None

PATIENT
  Age: 62 Year
  Sex: Female
  Weight: 68 kg

DRUGS (10)
  1. ALENDRONATE [Suspect]
  2. HYDROXYZINE PAMOATE [Concomitant]
  3. PREDNISONE [Concomitant]
  4. RISEDRONATE [Concomitant]
  5. FEXOFENADINE HCL [Concomitant]
  6. PAROXETINE HCL [Concomitant]
  7. ALENDRONATE [Concomitant]
  8. ATENOLOL [Concomitant]
  9. CALCIUM / VITAMIN D [Concomitant]
  10. CLOBETASOL PROPIONATE [Concomitant]

REACTIONS (1)
  - NONSPECIFIC REACTION [None]
